FAERS Safety Report 4998053-5 (Version None)
Quarter: 2006Q2

REPORT INFORMATION
  Report Type: 
  Country: None (occurrence: None)
  Receive Date: 20060510
  Receipt Date: 20060103
  Transmission Date: 20061013
  Serious: Yes (Hospitalization)
  Sender: FDA-Public Use
  Company Number: US-MERCK-0601USA00230

PATIENT
  Age: 39 Year
  Sex: Male

DRUGS (6)
  1. VIOXX [Suspect]
     Indication: MUSCLE SPASMS
     Route: 048
  2. VIOXX [Suspect]
     Route: 048
  3. VIOXX [Suspect]
     Indication: INFLAMMATION
     Route: 048
  4. VIOXX [Suspect]
     Route: 048
  5. VIOXX [Suspect]
     Route: 048
  6. VIOXX [Suspect]
     Route: 048

REACTIONS (10)
  - ANGINA PECTORIS [None]
  - ARRHYTHMIA [None]
  - BACK PAIN [None]
  - CHEST PAIN [None]
  - CONDUCTION DISORDER [None]
  - CORONARY ARTERY DISEASE [None]
  - HYPERLIPIDAEMIA [None]
  - MYOCARDIAL INFARCTION [None]
  - OVERDOSE [None]
  - SPINAL DISORDER [None]
